FAERS Safety Report 4950863-6 (Version None)
Quarter: 2006Q1

REPORT INFORMATION
  Report Type: 
  Country: None (occurrence: None)
  Receive Date: 20060322
  Receipt Date: 20021101
  Transmission Date: 20060701
  Serious: Yes (Other)
  Sender: FDA-Public Use
  Company Number: DE-BRISTOL-MYERS SQUIBB COMPANY-13314422

PATIENT
  Age: 52 Year
  Sex: Male
  Weight: 78 kg

DRUGS (10)
  1. VIDEX [Suspect]
     Indication: HIV INFECTION
     Dates: start: 19970701
  2. ZERIT [Suspect]
     Indication: HIV INFECTION
     Dates: start: 19970701
  3. ZIDOVUDINE [Concomitant]
     Indication: HIV INFECTION
     Dosage: RESTARTED DEC-1996, RESTARTED FEB-2000, RESTARTED OCT-2001
     Dates: start: 19960301
  4. ZALCITABINE [Concomitant]
     Indication: HIV INFECTION
     Dates: start: 19960301
  5. LAMIVUDINE [Concomitant]
     Indication: HIV INFECTION
     Dosage: RESTARTED FEB-2000, AGAIN RESTARTED IN OCT-2001
     Dates: start: 19961201
  6. NEVIRAPINE [Concomitant]
     Indication: HIV INFECTION
     Dates: start: 19970701
  7. ABACAVIR [Concomitant]
     Indication: HIV INFECTION
     Dosage: RESTARTED IN OCT-2001
     Dates: start: 20000201
  8. NELFINAVIR [Concomitant]
     Indication: HIV INFECTION
     Dates: start: 20000201
  9. SAQUINAVIR [Concomitant]
     Indication: HIV INFECTION
     Dates: start: 20011001
  10. RITONAVIR [Concomitant]
     Indication: HIV INFECTION
     Dates: start: 20011001

REACTIONS (15)
  - ABNORMAL FAECES [None]
  - DIARRHOEA [None]
  - FAT TISSUE INCREASED [None]
  - HEPATITIS B [None]
  - HERPES VIRUS INFECTION [None]
  - HERPES ZOSTER [None]
  - HYPERCHOLESTEROLAEMIA [None]
  - HYPERTENSION [None]
  - HYPOREFLEXIA [None]
  - INSOMNIA [None]
  - LIPOATROPHY [None]
  - NIGHT SWEATS [None]
  - SENSORY LOSS [None]
  - SLEEP DISORDER [None]
  - WEIGHT DECREASED [None]
